FAERS Safety Report 17796720 (Version 2)
Quarter: 2020Q2

REPORT INFORMATION
  Report Type: Report from Study
  Country: None (occurrence: ES)
  Receive Date: 20200518
  Receipt Date: 20200618
  Transmission Date: 20200714
  Serious: Yes (Hospitalization, Other)
  Sender: FDA-Public Use
  Company Number: ES-ABBVIE-20K-144-3384007-00

PATIENT
  Age: 69 Year
  Sex: Male

DRUGS (1)
  1. DUODOPA [Suspect]
     Active Substance: CARBIDOPA\LEVODOPA
     Indication: PARKINSON^S DISEASE
     Route: 050
     Dates: start: 20160127, end: 20200511

REACTIONS (4)
  - Device difficult to use [Not Recovered/Not Resolved]
  - Internal haemorrhage [Unknown]
  - Stoma site discharge [Not Recovered/Not Resolved]
  - Embedded device [Recovering/Resolving]

NARRATIVE: CASE EVENT DATE: 202004
